FAERS Safety Report 5206780-X (Version None)
Quarter: 2006Q4

REPORT INFORMATION
  Report Type: 
  Country: None (occurrence: None)
  Receive Date: 20061031
  Receipt Date: 20060816
  Transmission Date: 20070319
  Serious: No
  Sender: FDA-Public Use
  Company Number: APP200600232

PATIENT
  Age: 2 Year
  Sex: Female
  Weight: 11.81 kg

DRUGS (1)
  1. DEXAMETHASONE SODIUM PHOSPHATE [Suspect]
     Indication: URTICARIA
     Dosage: (4 MG, ONCE) INTRAMUSCULAR
     Route: 030
     Dates: start: 20060625, end: 20060625

REACTIONS (1)
  - HYPERSENSITIVITY [None]
